FAERS Safety Report 5016953-7 (Version None)
Quarter: 2006Q2

REPORT INFORMATION
  Report Type: 
  Country: None (occurrence: None)
  Receive Date: 20060526
  Receipt Date: 20060209
  Transmission Date: 20061013
  Serious: No
  Sender: FDA-Public Use
  Company Number: 33930

PATIENT

DRUGS (3)
  1. NEVANAC [Suspect]
     Indication: PROPHYLAXIS
  2. VIGAMOX [Concomitant]
  3. ECONOPRED PLUS [Concomitant]

REACTIONS (4)
  - CORNEAL TRANSPLANT [None]
  - SURGICAL PROCEDURE REPEATED [None]
  - TRANSPLANT FAILURE [None]
  - ULCERATIVE KERATITIS [None]
